FAERS Safety Report 25840109 (Version 1)
Quarter: 2025Q3

REPORT INFORMATION
  Report Type: Spontaneous
  Country: CN (occurrence: CN)
  Receive Date: 20250924
  Receipt Date: 20250924
  Transmission Date: 20251021
  Serious: Yes (Hospitalization, Other)
  Sender: BAXTER
  Company Number: None

PATIENT
  Age: 41 Year
  Sex: Female
  Weight: 42.5 kg

DRUGS (6)
  1. IFOSFAMIDE [Suspect]
     Active Substance: IFOSFAMIDE
     Indication: Liposarcoma
     Dosage: 2 G, QD
     Route: 041
     Dates: start: 20250908, end: 20250912
  2. DOXORUBICIN HYDROCHLORIDE [Suspect]
     Active Substance: DOXORUBICIN HYDROCHLORIDE
     Indication: Liposarcoma
     Dosage: 20 MG, QD
     Route: 041
     Dates: start: 20250908, end: 20250910
  3. EPIRUBICIN [Suspect]
     Active Substance: EPIRUBICIN
     Indication: Liposarcoma
     Route: 042
     Dates: start: 20250908, end: 20250910
  4. SODIUM CHLORIDE [Suspect]
     Active Substance: SODIUM CHLORIDE
     Indication: Medication dilution
     Dosage: 1000 ML, QD, (CENTRAL VEIN) QD D1-D5, (WITH IFOSFAMIDE)
     Route: 041
     Dates: start: 20250908, end: 20250912
  5. DEXTROSE [Suspect]
     Active Substance: DEXTROSE MONOHYDRATE
     Indication: Medication dilution
     Dosage: 250 ML, QD, (CENTRAL VEIN) QD D1-D3, (WITH EPIRUBICIN)
     Route: 041
     Dates: start: 20250908, end: 20250910
  6. STERILE WATER [Suspect]
     Active Substance: WATER
     Indication: Medication dilution
     Dosage: 10 ML, QD, (WITH IFOSFAMIDE)
     Route: 041
     Dates: start: 20250908, end: 20250912

REACTIONS (5)
  - General physical condition abnormal [Unknown]
  - Nausea [Recovering/Resolving]
  - Vomiting [Recovering/Resolving]
  - Decreased appetite [Unknown]
  - Inadequate diet [Unknown]

NARRATIVE: CASE EVENT DATE: 20250909
